FAERS Safety Report 8281052 (Version 2)
Quarter: 2012Q4

REPORT INFORMATION
  Report Type: 
  Country: US (occurrence: US)
  Receive Date: 20111208
  Receipt Date: 20121112
  Transmission Date: 20130627
  Serious: Yes (Hospitalization, Other)
  Sender: FDA-Public Use
  Company Number: US-ASTRAZENECA-2010SE23990

PATIENT
  Age: 72 Year
  Sex: Female

DRUGS (2)
  1. CRESTOR [Suspect]
     Route: 048
  2. AROMACIN [Concomitant]

REACTIONS (8)
  - Breast cancer female [Unknown]
  - Plasma cell myeloma [Unknown]
  - Neoplasm malignant [Unknown]
  - Fibromyalgia [Unknown]
  - Hypertension [Unknown]
  - Rheumatoid arthritis [Unknown]
  - Blood cholesterol increased [Unknown]
  - Drug dose omission [Unknown]
